FAERS Safety Report 12427289 (Version 6)
Quarter: 2017Q3

REPORT INFORMATION
  Report Type: Report from Study
  Country: FR (occurrence: FR)
  Receive Date: 20160602
  Receipt Date: 20170725
  Transmission Date: 20171127
  Serious: Yes (Hospitalization, Other)
  Sender: FDA-Public Use
  Company Number: PHHO2016FR007747

PATIENT
  Age: 51 Year
  Sex: Female
  Weight: 60 kg

DRUGS (10)
  1. MINIRIN [Concomitant]
     Active Substance: DESMOPRESSIN ACETATE
     Indication: ADRENOCORTICOTROPIC HORMONE DEFICIENCY
     Dosage: 60 MG (1-0-1)
     Route: 048
     Dates: start: 201601
  2. OROZAMUDOL [Concomitant]
     Active Substance: TRAMADOL
     Indication: PAIN
     Dosage: 50 MG, UNK
     Route: 065
     Dates: start: 201601
  3. DABRAFENIB [Suspect]
     Active Substance: DABRAFENIB
     Indication: METASTATIC MALIGNANT MELANOMA
     Dosage: 75 MG (2-0-2)
     Route: 048
     Dates: start: 201603, end: 20160606
  4. LEVOTHYROX [Concomitant]
     Active Substance: LEVOTHYROXINE
     Indication: HYPOTHYROIDISM
     Dosage: 50 MG, QD
     Route: 048
     Dates: start: 201601
  5. DIFFU-K [Concomitant]
     Active Substance: POTASSIUM CHLORIDE
     Indication: ADRENOCORTICOTROPIC HORMONE DEFICIENCY
     Dosage: 60 MG (2-0-2)
     Route: 048
     Dates: start: 201603, end: 20160518
  6. TRAMETINIB [Suspect]
     Active Substance: TRAMETINIB
     Indication: METASTATIC MALIGNANT MELANOMA
     Dosage: 2 MG, UNK
     Route: 048
     Dates: start: 20160322, end: 20160613
  7. CEFTRIAXONE. [Suspect]
     Active Substance: CEFTRIAXONE
     Indication: PYREXIA
     Dosage: UNK
     Route: 065
     Dates: start: 20160511, end: 20160515
  8. SOLUPRED [Concomitant]
     Active Substance: PREDNISOLONE
     Indication: ADRENOCORTICOTROPIC HORMONE DEFICIENCY
     Dosage: 10 MG, QD
     Route: 048
     Dates: start: 201603, end: 20160518
  9. ANTIBIOTICS [Concomitant]
     Active Substance: UNSPECIFIED INGREDIENT
     Indication: DIARRHOEA
     Route: 065
  10. DOLIPRANE [Concomitant]
     Active Substance: ACETAMINOPHEN
     Indication: PAIN
     Dosage: 100 MG (6H)
     Route: 048
     Dates: start: 201601

REACTIONS (3)
  - Pyrexia [Recovered/Resolved]
  - Adrenal insufficiency [Recovered/Resolved]
  - Adrenal insufficiency [Recovered/Resolved]

NARRATIVE: CASE EVENT DATE: 20160518
